FAERS Safety Report 7080879-8 (Version None)
Quarter: 2010Q4

REPORT INFORMATION
  Report Type: 
  Country: None (occurrence: None)
  Receive Date: 20101103
  Receipt Date: 20101029
  Transmission Date: 20110411
  Serious: Yes (Other)
  Sender: FDA-Public Use
  Company Number: US-B.I. PHARMACEUTICALS,INC./RIDGEFIELD-2010-BP-12189BP

PATIENT
  Sex: Male

DRUGS (5)
  1. SPIRIVA [Suspect]
     Indication: CHRONIC OBSTRUCTIVE PULMONARY DISEASE
     Dosage: 18 MCG
     Route: 055
     Dates: start: 20070101
  2. TERAZOSYN [Concomitant]
     Indication: PROSTATIC DISORDER
     Dosage: 5 MG
     Route: 048
  3. GENERLAC [Concomitant]
     Indication: ABDOMINAL DISCOMFORT
     Route: 048
  4. OXYGEN [Concomitant]
     Indication: CHRONIC OBSTRUCTIVE PULMONARY DISEASE
  5. FOLIC ACID [Concomitant]
     Indication: PROPHYLAXIS
     Dosage: 1600 MG
     Route: 048

REACTIONS (4)
  - DEPRESSION [None]
  - HAEMOLYTIC ANAEMIA [None]
  - INCREASED UPPER AIRWAY SECRETION [None]
  - LYMPHOMA [None]
